FAERS Safety Report 9553929 (Version 2)
Quarter: 2013Q3

REPORT INFORMATION
  Report Type: Spontaneous
  Country: GB (occurrence: GB)
  Receive Date: 20130925
  Receipt Date: 20130925
  Transmission Date: 20140515
  Serious: Yes (Disabling, Other)
  Sender: FDA-Public Use
  Company Number: GB-ABBVIE-12P-167-0994329-00

PATIENT
  Age: 42 Year
  Sex: Male
  Weight: 105 kg

DRUGS (3)
  1. HUMIRA [Suspect]
     Indication: ANKYLOSING SPONDYLITIS
     Route: 050
     Dates: start: 20120218, end: 20120529
  2. SULPHASALAZINE [Concomitant]
     Indication: ANKYLOSING SPONDYLITIS
     Dosage: LONG TERM
  3. NABUMETONE [Concomitant]
     Indication: ANKYLOSING SPONDYLITIS
     Dosage: LONG TERM

REACTIONS (3)
  - Colitis [Recovered/Resolved]
  - Inflammatory bowel disease [Recovered/Resolved]
  - Rectal ulcer [Recovered/Resolved]
